FAERS Safety Report 6754987-2 (Version None)
Quarter: 2010Q2

REPORT INFORMATION
  Report Type: 
  Country: None (occurrence: None)
  Receive Date: 20100602
  Receipt Date: 20100526
  Transmission Date: 20101027
  Serious: Yes (Other)
  Sender: FDA-Public Use
  Company Number: 2010SP029789

PATIENT
  Sex: Female

DRUGS (1)
  1. NOXAFIL [Suspect]

REACTIONS (1)
  - BONE MARROW TRANSPLANT [None]
